FAERS Safety Report 15419103 (Version 1)
Quarter: 2018Q3

REPORT INFORMATION
  Report Type: Spontaneous
  Country: GB (occurrence: GB)
  Receive Date: 20180924
  Receipt Date: 20180924
  Transmission Date: 20181010
  Serious: Yes (Other)
  Sender: FDA-Public Use
  Company Number: GB-BRISTOL-MYERS SQUIBB COMPANY-BMS-2018-086799

PATIENT
  Age: 75 Year
  Sex: Female

DRUGS (1)
  1. APIXABAN [Suspect]
     Active Substance: APIXABAN
     Indication: CEREBROVASCULAR ACCIDENT PROPHYLAXIS
     Dosage: 10 MG PER DAY,UNK
     Route: 048
     Dates: end: 20180616

REACTIONS (3)
  - Rash [Unknown]
  - Hypersensitivity [Unknown]
  - Drug reaction with eosinophilia and systemic symptoms [Unknown]
